FAERS Safety Report 7630454-9 (Version None)
Quarter: 2011Q3

REPORT INFORMATION
  Report Type: 
  Country: None (occurrence: None)
  Receive Date: 20110722
  Receipt Date: 20110715
  Transmission Date: 20111222
  Serious: Yes (Hospitalization, Disabling, Other)
  Sender: FDA-Public Use
  Company Number: US-US-EMD SERONO, INC.-7064424

PATIENT
  Sex: Female

DRUGS (3)
  1. ANTIDEPRESSANT [Concomitant]
     Indication: DEPRESSION
  2. AMPYRA [Concomitant]
  3. REBIF [Suspect]
     Indication: MULTIPLE SCLEROSIS
     Route: 058
     Dates: start: 20110416, end: 20110610

REACTIONS (12)
  - SPEECH DISORDER [None]
  - DISEASE PROGRESSION [None]
  - SKIN DISCOLOURATION [None]
  - TREMOR [None]
  - AMNESIA [None]
  - FACIAL ASYMMETRY [None]
  - SYPHILIS [None]
  - MUSCULAR WEAKNESS [None]
  - HEAD INJURY [None]
  - PERIPHERAL COLDNESS [None]
  - FALL [None]
  - DRUG INEFFECTIVE [None]
